FAERS Safety Report 6980397-9 (Version None)
Quarter: 2010Q3

REPORT INFORMATION
  Report Type: 
  Country: None (occurrence: None)
  Receive Date: 20100914
  Receipt Date: 20100902
  Transmission Date: 20110219
  Serious: Yes (Hospitalization)
  Sender: FDA-Public Use
  Company Number: US-JNJFOC-20100902392

PATIENT
  Age: 38 Year
  Sex: Female

DRUGS (4)
  1. INFLIXIMAB, RECOMBINANT [Suspect]
     Indication: ILEITIS
     Route: 042
  2. INFLIXIMAB, RECOMBINANT [Suspect]
     Route: 042
  3. INFLIXIMAB, RECOMBINANT [Suspect]
     Route: 042
  4. AZATHIOPRINE [Concomitant]
     Indication: ILEITIS

REACTIONS (3)
  - INFLAMMATORY BOWEL DISEASE [None]
  - MENINGITIS ASEPTIC [None]
  - PYODERMA GANGRENOSUM [None]
